FAERS Safety Report 5025954-4 (Version None)
Quarter: 2006Q2

REPORT INFORMATION
  Report Type: 
  Country: None (occurrence: None)
  Receive Date: 20060612
  Receipt Date: 20060612
  Transmission Date: 20061013
  Serious: Yes (Other)
  Sender: FDA-Public Use
  Company Number: None

PATIENT
  Sex: Male
  Weight: 90.7194 kg

DRUGS (1)
  1. CELEXA [Suspect]
     Indication: DEPRESSION
     Dosage: 1 TABLET DAILY INJ
     Dates: start: 20041015, end: 20060415

REACTIONS (7)
  - ANORGASMIA [None]
  - BLISTER [None]
  - ERECTILE DYSFUNCTION [None]
  - GENITAL DISORDER MALE [None]
  - LOSS OF LIBIDO [None]
  - SEXUAL DYSFUNCTION [None]
  - SEXUAL RELATIONSHIP CHANGE [None]
